FAERS Safety Report 20766062 (Version 2)
Quarter: 2023Q1

REPORT INFORMATION
  Report Type: Report from Study
  Country: US (occurrence: US)
  Receive Date: 20220428
  Receipt Date: 20230112
  Transmission Date: 20230418
  Serious: No
  Sender: FDA-Public Use
  Company Number: US-SANOFI-01076341

PATIENT
  Age: 61 Year
  Sex: Female

DRUGS (2)
  1. DUPILUMAB [Suspect]
     Active Substance: DUPILUMAB
     Indication: Asthma
     Dosage: 600 MG, 1X
     Route: 058
     Dates: start: 20211101, end: 20211101
  2. DUPILUMAB [Suspect]
     Active Substance: DUPILUMAB
     Indication: Lung disorder
     Dosage: 300 MG, QOW
     Route: 058
     Dates: start: 20211115

REACTIONS (4)
  - Injection site indentation [Recovering/Resolving]
  - Injection site pain [Unknown]
  - Product use in unapproved indication [Unknown]
  - Product preparation error [Unknown]

NARRATIVE: CASE EVENT DATE: 20211101
